FAERS Safety Report 11162677 (Version 1)
Quarter: 2015Q2

REPORT INFORMATION
  Report Type: Spontaneous
  Country: CN (occurrence: None)
  Receive Date: 20150602
  Receipt Date: 20150602
  Transmission Date: 20150821
  Serious: Yes (Hospitalization)
  Sender: FDA-Public Use
  Company Number: FK201502536

PATIENT
  Age: 26 Year
  Sex: Female

DRUGS (3)
  1. CARBOPLATIN (MANUFACTURER UNKNOWN) (CARBOPLATIN) (CARBOPLATIN) [Suspect]
     Active Substance: CARBOPLATIN
     Indication: YOLK SAC TUMOUR SITE UNSPECIFIED
     Dosage: 2  CYCLES, DAY 1, AREA UNDER CURVE 5 MG/MIN
     Route: 042
     Dates: start: 201204, end: 201205
  2. ETOPOSIDE (MANUFACTURER UNKNOWN) (ETOPOSIDE) (ETOPOSIDE) [Suspect]
     Active Substance: ETOPOSIDE
     Indication: YOLK SAC TUMOUR SITE UNSPECIFIED
     Dosage: 100 ,G/M2, 2 CYCLES, DAYS 1-5
     Route: 042
     Dates: start: 201204, end: 201205
  3. BLEOMYCIN [Suspect]
     Active Substance: BLEOMYCIN SULFATE
     Indication: YOLK SAC TUMOUR SITE UNSPECIFIED
     Dosage: 30 MG, 2 CYCLES, DAYS 1, 8 AND 15
     Route: 042
     Dates: start: 201204, end: 201205

REACTIONS (4)
  - Abdominal abscess [None]
  - Appendicitis [None]
  - Neutropenic sepsis [None]
  - Mucosal inflammation [None]
